FAERS Safety Report 8457083-1 (Version None)
Quarter: 2012Q2

REPORT INFORMATION
  Report Type: 
  Country: None (occurrence: None)
  Receive Date: 20120615
  Receipt Date: 20120605
  Transmission Date: 20120825
  Serious: Yes (Hospitalization)
  Sender: FDA-Public Use
  Company Number: 133444 - 1

PATIENT
  Age: 10 Year
  Sex: Male

DRUGS (1)
  1. DAUNORUBICIN HCL [Suspect]
     Indication: ACUTE LYMPHOCYTIC LEUKAEMIA
     Dates: start: 20120330

REACTIONS (7)
  - DEHYDRATION [None]
  - ABDOMINAL PAIN [None]
  - NAUSEA [None]
  - HYPONATRAEMIA [None]
  - WEIGHT DECREASED [None]
  - INAPPROPRIATE ANTIDIURETIC HORMONE SECRETION [None]
  - DECREASED APPETITE [None]
